FAERS Safety Report 20592465 (Version 6)
Quarter: 2022Q2

REPORT INFORMATION
  Report Type: Report from Study
  Country: JP (occurrence: JP)
  Receive Date: 20220314
  Receipt Date: 20220422
  Transmission Date: 20220721
  Serious: Yes (Other)
  Sender: FDA-Public Use
  Company Number: JP-ABBVIE-22K-087-4273883-00

PATIENT
  Sex: Female

DRUGS (2)
  1. CARBIDOPA\LEVODOPA [Suspect]
     Active Substance: CARBIDOPA\LEVODOPA
     Indication: Parkinson^s disease
     Route: 050
     Dates: start: 20220202
  2. CARBIDOPA\LEVODOPA [Suspect]
     Active Substance: CARBIDOPA\LEVODOPA

REACTIONS (12)
  - Cataract [Unknown]
  - General physical health deterioration [Unknown]
  - Malaise [Unknown]
  - Mobility decreased [Unknown]
  - Fatigue [Unknown]
  - Stoma site discharge [Unknown]
  - Stoma site extravasation [Unknown]
  - Dyskinesia [Unknown]
  - On and off phenomenon [Unknown]
  - Drug ineffective [Unknown]
  - Stoma site pain [Unknown]
  - Device issue [Unknown]

NARRATIVE: CASE EVENT DATE: 20220101
